FAERS Safety Report 21228527 (Version 2)
Quarter: 2022Q3

REPORT INFORMATION
  Report Type: Spontaneous
  Country: US (occurrence: US)
  Receive Date: 20220818
  Receipt Date: 20220824
  Transmission Date: 20221026
  Serious: Yes (Life-Threatening, Hospitalization)
  Sender: FDA-Public Use
  Company Number: US-BRISTOL-MYERS SQUIBB COMPANY-2022-090564

PATIENT
  Age: 64 Year
  Sex: Female

DRUGS (1)
  1. REVLIMID [Suspect]
     Active Substance: LENALIDOMIDE
     Indication: Plasma cell myeloma
     Dosage: DOSING: 1 CAPSULE (15MG) BY MOUTH DAILY 14DAYS ON, 7 DAYS OFF.
     Route: 048
     Dates: start: 20220702

REACTIONS (5)
  - Mental disorder [Unknown]
  - Blood potassium increased [Unknown]
  - Blood creatinine increased [Unknown]
  - General physical condition [Unknown]
  - Off label use [Unknown]
